FAERS Safety Report 7921463-0 (Version None)
Quarter: 2011Q4

REPORT INFORMATION
  Report Type: 
  Country: None (occurrence: None)
  Receive Date: 20111117
  Receipt Date: 20111114
  Transmission Date: 20120403
  Serious: Yes (Other)
  Sender: FDA-Public Use
  Company Number: GB-PFIZER INC-2011278997

PATIENT
  Age: 84 Year
  Sex: Female
  Weight: 95 kg

DRUGS (5)
  1. NOVOLOG MIX 70/30 [Concomitant]
     Dosage: UNK
     Dates: start: 20110823, end: 20110920
  2. NOVOLOG MIX 70/30 [Concomitant]
     Dosage: UNK
     Dates: start: 20110922, end: 20111020
  3. RAMIPRIL [Suspect]
     Dosage: UNK
     Dates: start: 20111101
  4. NOVOLOG MIX 70/30 [Concomitant]
     Dosage: UNK
     Dates: start: 20111101
  5. NOVOLOG MIX 70/30 [Concomitant]
     Dosage: UNK
     Dates: start: 20110705, end: 20110802

REACTIONS (3)
  - SWOLLEN TONGUE [None]
  - LIP SWELLING [None]
  - OEDEMA MOUTH [None]
